FAERS Safety Report 22267800 (Version 1)
Quarter: 2023Q2

REPORT INFORMATION
  Report Type: Other
  Country: US (occurrence: None)
  Receive Date: 20230430
  Receipt Date: 20230430
  Transmission Date: 20230722
  Serious: Yes (Other)
  Sender: FDA-Public Use
  Company Number: US-Navinta LLC-000256

PATIENT

DRUGS (2)
  1. RIBAVIRIN [Suspect]
     Active Substance: RIBAVIRIN
     Indication: Cervix carcinoma
     Route: 048
  2. RIBAVIRIN [Suspect]
     Active Substance: RIBAVIRIN
     Indication: Papilloma viral infection
     Route: 048

REACTIONS (4)
  - Disease progression [Unknown]
  - Cervix carcinoma [Unknown]
  - Toxicity to various agents [Unknown]
  - Anaemia [Unknown]
